FAERS Safety Report 4358360-6 (Version None)
Quarter: 2004Q2

REPORT INFORMATION
  Report Type: 
  Country: None (occurrence: None)
  Receive Date: 20040510
  Receipt Date: 20040428
  Transmission Date: 20050107
  Serious: Yes (Hospitalization)
  Sender: FDA-Public Use
  Company Number: HQWYE660930APR04

PATIENT
  Age: 40 Year
  Sex: Female

DRUGS (1)
  1. EFFEXOR [Suspect]
     Indication: DEPRESSION

REACTIONS (3)
  - DRUG WITHDRAWAL SYNDROME [None]
  - MENINGITIS [None]
  - UNEVALUABLE EVENT [None]
